FAERS Safety Report 16660903 (Version 1)
Quarter: 2019Q3

REPORT INFORMATION
  Report Type: Spontaneous
  Country: CZ (occurrence: CZ)
  Receive Date: 20190802
  Receipt Date: 20190802
  Transmission Date: 20191004
  Serious: Yes (Hospitalization, Other)
  Sender: FDA-Public Use
  Company Number: CZ-FRESENIUS KABI-FK201908531

PATIENT
  Age: 48 Year
  Sex: Female

DRUGS (9)
  1. FOLINIC ACID [Concomitant]
     Active Substance: LEUCOVORIN
     Indication: RECTAL ADENOCARCINOMA
     Route: 065
  2. PANITUMUMAB [Concomitant]
     Active Substance: PANITUMUMAB
     Indication: RECTAL ADENOCARCINOMA
     Route: 065
  3. OXALIPLATIN (MANUFACTURER UNKNOWN) [Suspect]
     Active Substance: OXALIPLATIN
     Dosage: 2 CYCLES
     Route: 065
     Dates: start: 201705
  4. OXALIPLATIN (MANUFACTURER UNKNOWN) [Suspect]
     Active Substance: OXALIPLATIN
     Indication: RECTAL ADENOCARCINOMA
     Dosage: 8 CYCLES
     Route: 065
     Dates: end: 201312
  5. FLUOROURACIL. [Concomitant]
     Active Substance: FLUOROURACIL
     Indication: RECTAL ADENOCARCINOMA
     Route: 065
  6. OXALIPLATIN (MANUFACTURER UNKNOWN) [Suspect]
     Active Substance: OXALIPLATIN
     Dosage: 6 CYCLES
     Route: 065
     Dates: start: 201404, end: 201409
  7. OXALIPLATIN (MANUFACTURER UNKNOWN) [Suspect]
     Active Substance: OXALIPLATIN
     Dosage: 4 CYCLES
     Route: 065
     Dates: start: 201411, end: 201502
  8. IRINOTECAN [Concomitant]
     Active Substance: IRINOTECAN
     Indication: RECTAL ADENOCARCINOMA
     Route: 065
  9. CAPECITABINE. [Suspect]
     Active Substance: CAPECITABINE
     Indication: RECTAL ADENOCARCINOMA
     Route: 065
     Dates: start: 201705

REACTIONS (4)
  - Evans syndrome [Unknown]
  - Acute kidney injury [Unknown]
  - Hypersensitivity [Unknown]
  - Neurotoxicity [Unknown]

NARRATIVE: CASE EVENT DATE: 201312
